FAERS Safety Report 15082052 (Version 1)
Quarter: 2018Q2

REPORT INFORMATION
  Report Type: Spontaneous
  Country: BR (occurrence: BR)
  Receive Date: 20180628
  Receipt Date: 20180628
  Transmission Date: 20180711
  Serious: Yes (Other)
  Sender: FDA-Public Use
  Company Number: BR-AMGEN-BRASP2018084632

PATIENT
  Age: 68 Year
  Sex: Female

DRUGS (1)
  1. BLINCYTO [Suspect]
     Active Substance: BLINATUMOMAB
     Indication: PRODUCT USED FOR UNKNOWN INDICATION
     Dosage: 28 MUG/ML, UNK
     Route: 065

REACTIONS (8)
  - Somnolence [Unknown]
  - White blood cell count decreased [Unknown]
  - Depressive symptom [Unknown]
  - Platelet count decreased [Unknown]
  - Pyrexia [Recovered/Resolved]
  - Tremor [Unknown]
  - Graft versus host disease [Unknown]
  - Aphasia [Unknown]
